FAERS Safety Report 6631876-5 (Version None)
Quarter: 2010Q1

REPORT INFORMATION
  Report Type: 
  Country: None (occurrence: None)
  Receive Date: 20100312
  Receipt Date: 20100308
  Transmission Date: 20100710
  Serious: Yes (Hospitalization)
  Sender: FDA-Public Use
  Company Number: FR-ROCHE-689631

PATIENT
  Sex: Male

DRUGS (4)
  1. RIVOTRIL [Suspect]
     Indication: HERPES ZOSTER
     Dosage: STRENGTH: 2.5 MG/ML, DRINKABLE SOLUTION
     Route: 048
     Dates: start: 20100131, end: 20100207
  2. ZELITREX [Suspect]
     Indication: HERPES ZOSTER
     Route: 048
     Dates: start: 20100131, end: 20100207
  3. BIPRETERAX [Suspect]
     Dosage: 1 DOSE FORM QD
     Route: 048
  4. ALLOPURINOL [Suspect]
     Indication: DRUG USE FOR UNKNOWN INDICATION
     Route: 048

REACTIONS (1)
  - PALATAL OEDEMA [None]
